FAERS Safety Report 11053055 (Version 5)
Quarter: 2019Q4

REPORT INFORMATION
  Report Type: Spontaneous
  Country: US (occurrence: US)
  Receive Date: 20150421
  Receipt Date: 20191210
  Transmission Date: 20200122
  Serious: No
  Sender: FDA-Public Use
  Company Number: US-JNJFOC-20150323227

PATIENT
  Age: 4 Year
  Sex: Male

DRUGS (2)
  1. RISPERDAL [Suspect]
     Active Substance: RISPERIDONE
     Indication: ATTENTION DEFICIT/HYPERACTIVITY DISORDER
  2. RISPERDAL [Suspect]
     Active Substance: RISPERIDONE
     Indication: IMPULSIVE BEHAVIOUR
     Dosage: VARYING DOSES OF 0.125, 0.25, 0.375, 0.5 MILLIGRAM
     Route: 048
     Dates: start: 200411, end: 200806

REACTIONS (6)
  - Gynaecomastia [Unknown]
  - Weight increased [Unknown]
  - Treatment noncompliance [Unknown]
  - Emotional disorder [Unknown]
  - Product use in unapproved indication [Unknown]
  - Off label use [Unknown]

NARRATIVE: CASE EVENT DATE: 200411
